FAERS Safety Report 19068802 (Version 2)
Quarter: 2021Q2

REPORT INFORMATION
  Report Type: Report from Study
  Country: US (occurrence: US)
  Receive Date: 20210329
  Receipt Date: 20210601
  Transmission Date: 20210717
  Serious: Yes (Other)
  Sender: FDA-Public Use
  Company Number: US-JNJFOC-20190818502

PATIENT
  Age: 63 Year
  Sex: Female
  Weight: 79.45 kg

DRUGS (12)
  1. IMBRUVICA [Suspect]
     Active Substance: IBRUTINIB
     Indication: PRODUCT USED FOR UNKNOWN INDICATION
     Dosage: 280 MG, QD
     Route: 048
  2. IMBRUVICA [Suspect]
     Active Substance: IBRUTINIB
     Route: 048
     Dates: start: 20190329
  3. IMBRUVICA [Suspect]
     Active Substance: IBRUTINIB
     Route: 048
  4. IMBRUVICA [Suspect]
     Active Substance: IBRUTINIB
     Route: 048
     Dates: start: 201803
  5. IMBRUVICA [Suspect]
     Active Substance: IBRUTINIB
     Dosage: 420 MG, QD
     Route: 048
  6. IMBRUVICA [Suspect]
     Active Substance: IBRUTINIB
     Route: 048
     Dates: start: 201904
  7. IMBRUVICA [Suspect]
     Active Substance: IBRUTINIB
     Route: 048
     Dates: start: 201904
  8. XARELTO [Suspect]
     Active Substance: RIVAROXABAN
     Indication: ANTICOAGULANT THERAPY
     Route: 048
  9. VITAMIN D [ERGOCALCIFEROL] [Concomitant]
     Active Substance: ERGOCALCIFEROL
     Indication: SUPPLEMENTATION THERAPY
     Route: 048
     Dates: start: 201909
  10. IMBRUVICA [Suspect]
     Active Substance: IBRUTINIB
     Indication: CHRONIC LYMPHOCYTIC LEUKAEMIA
     Dosage: 420 MG, QD
     Route: 048
     Dates: start: 201903
  11. XARELTO [Suspect]
     Active Substance: RIVAROXABAN
     Route: 065
  12. CETIRIZINE [Concomitant]
     Active Substance: CETIRIZINE HYDROCHLORIDE
     Indication: HYPERSENSITIVITY
     Route: 048

REACTIONS (25)
  - Pain [Not Recovered/Not Resolved]
  - Joint stiffness [Unknown]
  - Influenza [Not Recovered/Not Resolved]
  - Hypothyroidism [Unknown]
  - Peripheral swelling [Not Recovered/Not Resolved]
  - Contusion [Recovering/Resolving]
  - Alopecia [Recovered/Resolved]
  - Dyspnoea [Not Recovered/Not Resolved]
  - Lymphadenopathy [Unknown]
  - Laboratory test abnormal [Unknown]
  - Painful respiration [Unknown]
  - Arthritis [Recovering/Resolving]
  - Arthralgia [Recovered/Resolved]
  - Sinusitis [Unknown]
  - Myalgia [Not Recovered/Not Resolved]
  - Cough [Unknown]
  - Joint swelling [Recovered/Resolved]
  - White blood cell count abnormal [Unknown]
  - Epistaxis [Unknown]
  - Alopecia [Unknown]
  - Bedridden [Recovering/Resolving]
  - Seasonal allergy [Unknown]
  - Pain in extremity [Not Recovered/Not Resolved]
  - Fatigue [Unknown]
  - Red blood cell count increased [Recovering/Resolving]

NARRATIVE: CASE EVENT DATE: 201904
